FAERS Safety Report 7735549-7 (Version None)
Quarter: 2011Q3

REPORT INFORMATION
  Report Type: 
  Country: None (occurrence: None)
  Receive Date: 20110907
  Receipt Date: 20110823
  Transmission Date: 20111222
  Serious: Yes (Death, Hospitalization, Other)
  Sender: FDA-Public Use
  Company Number: GB-WATSON-2011-13890

PATIENT
  Age: 35 Year
  Sex: Male

DRUGS (3)
  1. PREDNISOLONE [Suspect]
     Indication: RENAL TRANSPLANT
     Dosage: 200 MG DAILY FOR 3 DAYS
  2. MYCOPHENOLATE MEFETIL [Suspect]
     Indication: RENAL TRANSPLANT
  3. TACROLIMUS [Suspect]
     Indication: RENAL TRANSPLANT

REACTIONS (5)
  - HERPES ZOSTER [None]
  - HERPES SIMPLEX HEPATITIS [None]
  - OPPORTUNISTIC INFECTION [None]
  - HERPES SIMPLEX [None]
  - ACUTE HEPATIC FAILURE [None]
